FAERS Safety Report 9007260 (Version 1)
Quarter: 2013Q1

REPORT INFORMATION
  Report Type: Spontaneous
  Country: FR (occurrence: FR)
  Receive Date: 20130110
  Receipt Date: 20130110
  Transmission Date: 20140127
  Serious: Yes (Hospitalization)
  Sender: FDA-Public Use
  Company Number: FR-ASTRAZENECA-2012SE18084

PATIENT
  Age: 28008 Day
  Sex: Female
  Weight: 45 kg

DRUGS (9)
  1. XEROQUEL [Suspect]
     Indication: DEPRESSION
     Route: 048
     Dates: start: 20120220, end: 20120224
  2. XEROQUEL [Suspect]
     Indication: DEPRESSION
     Route: 048
     Dates: start: 20120312, end: 20120312
  3. XEROQUEL [Suspect]
     Indication: DEPRESSION
     Route: 048
     Dates: start: 20120313, end: 20120314
  4. LEXOMIL [Concomitant]
     Indication: DEPRESSION
     Route: 048
     Dates: start: 20120225
  5. SPIRIVA [Concomitant]
     Indication: ASTHMA
     Route: 055
     Dates: start: 20120225
  6. ATACAND [Concomitant]
     Indication: HYPERTENSION
     Route: 048
     Dates: start: 20120225
  7. BRONCHODUAL [Concomitant]
     Indication: ASTHMA
     Route: 055
     Dates: start: 20120225
  8. DIPIPERON [Concomitant]
     Indication: DEPRESSION
     Route: 048
  9. DAFALGAN [Concomitant]
     Indication: ARTHRALGIA
     Route: 048

REACTIONS (2)
  - Rash erythematous [Recovered/Resolved]
  - Rash [Recovered/Resolved]
